FAERS Safety Report 4387825-6 (Version None)
Quarter: 2004Q2

REPORT INFORMATION
  Report Type: 
  Country: None (occurrence: None)
  Receive Date: 20040630
  Receipt Date: 20040526
  Transmission Date: 20050107
  Serious: Yes (Other)
  Sender: FDA-Public Use
  Company Number: PHNU2004DE01952

PATIENT
  Sex: Male

DRUGS (1)
  1. SANDIMMUNE [Suspect]

REACTIONS (2)
  - TENSION HEADACHE [None]
  - TRANSPLANT FAILURE [None]
